FAERS Safety Report 13655790 (Version 3)
Quarter: 2017Q3

REPORT INFORMATION
  Report Type: Spontaneous
  Country: US (occurrence: US)
  Receive Date: 20170615
  Receipt Date: 20170703
  Transmission Date: 20171127
  Serious: No
  Sender: FDA-Public Use
  Company Number: US-GLAXOSMITHKLINE-US2017GSK091127

PATIENT
  Age: 78 Year
  Sex: Female
  Weight: 86.17 kg

DRUGS (13)
  1. ASCORBIC ACID. [Concomitant]
     Active Substance: ASCORBIC ACID
     Dosage: 1000 MG, QD
     Route: 048
  2. PRILOSEC [Concomitant]
     Active Substance: OMEPRAZOLE MAGNESIUM
     Dosage: 40 MG, QD
  3. VITAMIN B-6 [Concomitant]
     Active Substance: PYRIDOXINE
     Dosage: 400 MG, QD
     Route: 048
  4. RED YEAST RICE [Concomitant]
     Active Substance: DIETARY SUPPLEMENT
     Dosage: 1800 MG, QD
     Route: 048
  5. ECOTRIN [Concomitant]
     Active Substance: ASPIRIN
     Dosage: 81 MG, QD
     Route: 048
  6. VITAMIN B12 [Concomitant]
     Active Substance: CYANOCOBALAMIN
     Dosage: 500 UG, UNK
     Route: 048
  7. BETA CAROTENE [Concomitant]
     Dosage: 25000 IU, QD
     Route: 048
  8. ANORO ELLIPTA [Suspect]
     Active Substance: UMECLIDINIUM BROMIDE\VILANTEROL TRIFENATATE
     Indication: BRONCHIAL HYPERREACTIVITY
     Dosage: UNK, QD
     Dates: start: 20170525, end: 20170607
  9. VITAMIN D3 [Concomitant]
     Active Substance: CHOLECALCIFEROL
     Dosage: 1000 IU, QD
     Route: 048
  10. OMEGA 3 [Concomitant]
     Active Substance: OMEGA-3 FATTY ACIDS
     Dosage: 1 DF, QD
     Route: 048
  11. DHEA [Concomitant]
     Active Substance: PRASTERONE
     Dosage: 25 MG, QD
     Route: 048
  12. ANORO ELLIPTA [Suspect]
     Active Substance: UMECLIDINIUM BROMIDE\VILANTEROL TRIFENATATE
     Indication: WHEEZING
  13. ACAI BERRY EXTRACT [Concomitant]
     Dosage: 1000 MG, QD
     Route: 048

REACTIONS (3)
  - Pain in extremity [Recovered/Resolved]
  - Dysphonia [Recovered/Resolved]
  - Oropharyngeal pain [Recovered/Resolved]

NARRATIVE: CASE EVENT DATE: 20170529
